FAERS Safety Report 4883090-1 (Version None)
Quarter: 2006Q1

REPORT INFORMATION
  Report Type: 
  Country: None (occurrence: None)
  Receive Date: 20060117
  Receipt Date: 20060117
  Transmission Date: 20060701
  Serious: Yes (Hospitalization)
  Sender: FDA-Public Use
  Company Number: None

PATIENT
  Sex: Female
  Weight: 54.1 kg

DRUGS (3)
  1. ZOSYN [Suspect]
     Indication: PNEUMONIA
     Dosage: 3.375   Q6H   IV
     Route: 042
  2. QUININE [Concomitant]
  3. LOVENOX [Concomitant]

REACTIONS (1)
  - THROMBOCYTOPENIA [None]
